FAERS Safety Report 17424797 (Version 1)
Quarter: 2020Q1

REPORT INFORMATION
  Report Type: Spontaneous
  Country: TW (occurrence: TW)
  Receive Date: 20200217
  Receipt Date: 20200217
  Transmission Date: 20200409
  Serious: Yes (Other)
  Sender: FDA-Public Use
  Company Number: NVSC2020TW034477

PATIENT
  Age: 45 Year
  Sex: Female

DRUGS (4)
  1. VENETOCLAX. [Concomitant]
     Active Substance: VENETOCLAX
     Indication: MYELODYSPLASTIC SYNDROME
     Dosage: UNK ((C4D1= 01 JAN 2019, C5D1=07 FEB 2019, C6D1=05 MAR 2019))
     Route: 065
     Dates: start: 20190101, end: 20190305
  2. CYCLOSPORINE. [Suspect]
     Active Substance: CYCLOSPORINE
     Indication: CHRONIC GRAFT VERSUS HOST DISEASE
     Dosage: UNK
     Route: 065
  3. VIDAZA [Concomitant]
     Active Substance: AZACITIDINE
     Indication: MYELODYSPLASTIC SYNDROME
     Dosage: UNK
     Route: 065
     Dates: start: 20181009, end: 20190305
  4. CEFEPIME [Suspect]
     Active Substance: CEFEPIME HYDROCHLORIDE
     Indication: PRODUCT USED FOR UNKNOWN INDICATION
     Dosage: UNK
     Route: 065

REACTIONS (9)
  - Von Willebrand^s disease [Unknown]
  - Altered state of consciousness [Recovered/Resolved]
  - Product use in unapproved indication [Unknown]
  - Chronic graft versus host disease [Unknown]
  - Thrombotic microangiopathy [Unknown]
  - Acute graft versus host disease [Recovering/Resolving]
  - Encephalopathy [Recovered/Resolved]
  - Malignant neoplasm progression [Unknown]
  - Vitamin B12 deficiency [Unknown]
